FAERS Safety Report 15782879 (Version 2)
Quarter: 2019Q1

REPORT INFORMATION
  Report Type: Report from Study
  Country: SE (occurrence: SE)
  Receive Date: 20190102
  Receipt Date: 20190109
  Transmission Date: 20190417
  Serious: Yes (Hospitalization, Other)
  Sender: FDA-Public Use
  Company Number: SE-UCBSA-2018057001

PATIENT
  Age: 74 Year
  Sex: Male

DRUGS (2)
  1. DELTISON [Concomitant]
     Active Substance: PREDNISONE
     Indication: PRODUCT USED FOR UNKNOWN INDICATION
     Dosage: 5 MG, UNK
     Dates: start: 20040515
  2. CERTOLIZUMAB PEGOL [Suspect]
     Active Substance: CERTOLIZUMAB PEGOL
     Indication: PSORIATIC ARTHROPATHY
     Dosage: 200 MG, UNK
     Dates: start: 20151005

REACTIONS (1)
  - Diverticular perforation [Recovering/Resolving]

NARRATIVE: CASE EVENT DATE: 20181103
